FAERS Safety Report 5660029-2 (Version None)
Quarter: 2008Q1

REPORT INFORMATION
  Report Type: 
  Country: None (occurrence: None)
  Receive Date: 20080311
  Receipt Date: 20070818
  Transmission Date: 20080703
  Serious: No
  Sender: FDA-Public Use
  Company Number: US-BAYER-200712710BCC

PATIENT
  Age: 4 Year
  Sex: Male

DRUGS (2)
  1. ALEVE [Suspect]
     Indication: ACCIDENTAL EXPOSURE
     Dosage: TOTAL DAILY DOSE: 880 MG  UNIT DOSE: 220 MG
     Route: 048
     Dates: start: 20070817
  2. TYLENOL EXTRA STRENGTH ORAL TABLET [Concomitant]
     Route: 048

REACTIONS (2)
  - ACCIDENTAL EXPOSURE [None]
  - NO ADVERSE EVENT [None]
